FAERS Safety Report 7138387-1 (Version None)
Quarter: 2010Q4

REPORT INFORMATION
  Report Type: 
  Country: None (occurrence: None)
  Receive Date: 20101118
  Receipt Date: 20100920
  Transmission Date: 20110411
  Serious: Yes (Hospitalization)
  Sender: FDA-Public Use
  Company Number: ADR-UNK-081

PATIENT
  Age: 52 Year
  Sex: Female
  Weight: 90.08 kg

DRUGS (7)
  1. TRIAL DRUG (DOUBLE-BLIND) [Suspect]
     Indication: MAJOR DEPRESSION
     Dosage: 150 MG/DAY + ORAL
     Route: 048
     Dates: start: 20100601
  2. ZOLOFT [Suspect]
     Indication: MAJOR DEPRESSION
     Dosage: 150 MG/DAY + ORAL
     Dates: start: 20100601
  3. DESICCATED THYROID 30 MG [Concomitant]
  4. ATENOLOL [Concomitant]
  5. OMEPRAZOLE [Concomitant]
  6. ZOLPIDEM [Concomitant]
  7. PLAVIX (CLOPIDOGREL) 25 MG [Concomitant]

REACTIONS (1)
  - CHEST PAIN [None]
